FAERS Safety Report 21989526 (Version 4)
Quarter: 2023Q1

REPORT INFORMATION
  Report Type: Report from Study
  Country: BR (occurrence: BR)
  Receive Date: 20230214
  Receipt Date: 20230327
  Transmission Date: 20230418
  Serious: Yes (Hospitalization, Other)
  Sender: FDA-Public Use
  Company Number: BR-Merck Healthcare KGaA-9381770

PATIENT
  Age: 77 Year
  Sex: Male

DRUGS (9)
  1. CETUXIMAB [Suspect]
     Active Substance: CETUXIMAB
     Indication: Laryngeal cancer metastatic
     Dosage: 828 MG, WEEKLY (1/W)
     Route: 042
     Dates: start: 20221017
  2. CETUXIMAB [Suspect]
     Active Substance: CETUXIMAB
     Dosage: 517 MG, WEEKLY (1/W)
     Route: 042
     Dates: start: 20221103
  3. CETUXIMAB [Suspect]
     Active Substance: CETUXIMAB
     Dosage: 437 MG, WEEKLY (1/W)
     Route: 042
     Dates: start: 20221117
  4. CETUXIMAB [Suspect]
     Active Substance: CETUXIMAB
     Dosage: 400 MG, WEEKLY (1/W)
     Route: 042
     Dates: start: 20221216
  5. CETUXIMAB [Suspect]
     Active Substance: CETUXIMAB
     Dosage: 400 MG, WEEKLY (1/W)
     Route: 042
     Dates: start: 20230310
  6. CARBOPLATIN [Suspect]
     Active Substance: CARBOPLATIN
     Indication: Laryngeal cancer metastatic
     Dosage: 378.28 MG, UNKNOWN
     Route: 065
     Dates: start: 20221017
  7. FLUOROURACIL [Suspect]
     Active Substance: FLUOROURACIL
     Indication: Laryngeal cancer metastatic
     Dosage: 7455.6 MG, UNKNOWN
     Route: 065
     Dates: start: 20221017
  8. CIMETIDINA [CIMETIDINE] [Concomitant]
     Indication: Product used for unknown indication
     Dosage: 150 UNK
  9. DIPHENHYDRAMINE [Concomitant]
     Active Substance: DIPHENHYDRAMINE
     Indication: Product used for unknown indication
     Dosage: UNK, UNKNOWN
     Route: 065

REACTIONS (8)
  - Anaemia [Unknown]
  - Gastrointestinal ulcer [Unknown]
  - Weight decreased [Recovering/Resolving]
  - Stomatitis [Unknown]
  - Dehydration [Recovered/Resolved]
  - Urinary tract infection [Recovered/Resolved]
  - Decreased appetite [Recovering/Resolving]
  - Dysentery [Unknown]

NARRATIVE: CASE EVENT DATE: 20230105
